FAERS Safety Report 5473365-X (Version None)
Quarter: 2007Q4

REPORT INFORMATION
  Report Type: 
  Country: None (occurrence: None)
  Receive Date: 20071001
  Receipt Date: 20070920
  Transmission Date: 20080405
  Serious: Yes (Other)
  Sender: FDA-Public Use
  Company Number: US-JNJFOC-20070904507

PATIENT
  Age: 31 Year
  Sex: Female
  Weight: 92.53 kg

DRUGS (2)
  1. TOPAMAX [Suspect]
     Indication: MIGRAINE PROPHYLAXIS
     Route: 048
  2. DEPO-PROVERA [Interacting]
     Indication: CONTRACEPTION
     Route: 050

REACTIONS (2)
  - DRUG INTERACTION [None]
  - NECROBIOSIS [None]
